FAERS Safety Report 5018942-5 (Version None)
Quarter: 2006Q2

REPORT INFORMATION
  Report Type: 
  Country: None (occurrence: None)
  Receive Date: 20060606
  Receipt Date: 20060424
  Transmission Date: 20061013
  Serious: Yes (Hospitalization)
  Sender: FDA-Public Use
  Company Number: FR-AVENTIS-200611551FR

PATIENT
  Age: 59 Year
  Sex: Male

DRUGS (12)
  1. TAVANIC [Suspect]
     Indication: PNEUMONIA
     Route: 048
     Dates: start: 20060225, end: 20060311
  2. FLAGYL [Suspect]
     Indication: PNEUMONIA
     Route: 048
     Dates: start: 20060302, end: 20060312
  3. DEPAMIDE [Suspect]
     Indication: BIPOLAR I DISORDER
     Route: 048
     Dates: start: 20060225, end: 20060314
  4. ACETAMINOPHEN [Suspect]
     Indication: PNEUMONIA
     Route: 048
     Dates: start: 20060225, end: 20060314
  5. TRIZIVIR [Concomitant]
     Indication: HIV INFECTION
  6. MEPRONIZINE [Concomitant]
  7. EFFEXOR [Concomitant]
  8. STILNOX [Concomitant]
  9. EQUANIL [Concomitant]
  10. THERALENE [Concomitant]
  11. SKENAN [Concomitant]
  12. ZYPREXA [Concomitant]

REACTIONS (2)
  - CHOLESTASIS [None]
  - HEPATIC ENZYME INCREASED [None]
